FAERS Safety Report 21874881 (Version 2)
Quarter: 2023Q1

REPORT INFORMATION
  Report Type: Spontaneous
  Country: US (occurrence: None)
  Receive Date: 20230117
  Receipt Date: 20230324
  Transmission Date: 20230418
  Serious: No
  Sender: FDA-Public Use
  Company Number: 2023A008455

PATIENT
  Age: 15094 Day
  Sex: Male

DRUGS (1)
  1. BYDUREON BCISE [Suspect]
     Active Substance: EXENATIDE
     Route: 058

REACTIONS (4)
  - Injection site injury [Unknown]
  - Injury [Unknown]
  - Incorrect dose administered by product [Unknown]
  - Needle issue [Unknown]

NARRATIVE: CASE EVENT DATE: 20230108
